FAERS Safety Report 6316344-2 (Version None)
Quarter: 2009Q3

REPORT INFORMATION
  Report Type: 
  Country: None (occurrence: None)
  Receive Date: 20090820
  Receipt Date: 20090814
  Transmission Date: 20100115
  Serious: Yes (Hospitalization)
  Sender: FDA-Public Use
  Company Number: A0802308A

PATIENT
  Age: 45 Year
  Sex: Female

DRUGS (6)
  1. VENTOLIN [Suspect]
     Indication: ASTHMA
     Dosage: 18G PER DAY
     Route: 055
     Dates: start: 20090522
  2. ZITHROMAX [Concomitant]
  3. RESTASIS [Concomitant]
  4. VIVELLE-DOT [Concomitant]
  5. DESFERAL [Concomitant]
  6. DOXYCYCLIN [Concomitant]

REACTIONS (24)
  - AMNESIA [None]
  - ARTHRALGIA [None]
  - CHEST PAIN [None]
  - CONFUSIONAL STATE [None]
  - DISTURBANCE IN ATTENTION [None]
  - DIZZINESS [None]
  - EAR DISCOMFORT [None]
  - EAR PAIN [None]
  - FEELING JITTERY [None]
  - HEADACHE [None]
  - LYME DISEASE [None]
  - MENTAL IMPAIRMENT [None]
  - MIGRAINE [None]
  - MUSCULOSKELETAL STIFFNESS [None]
  - NASAL SEPTUM DEVIATION [None]
  - NERVOUS SYSTEM DISORDER [None]
  - OROPHARYNGEAL DISCOMFORT [None]
  - OROPHARYNGEAL PAIN [None]
  - PAIN IN EXTREMITY [None]
  - PHARYNGITIS STREPTOCOCCAL [None]
  - PHOTOPSIA [None]
  - SINUSITIS [None]
  - SOMNOLENCE [None]
  - TINNITUS [None]
